FAERS Safety Report 9625571 (Version 1)
Quarter: 2013Q4

REPORT INFORMATION
  Report Type: Report from Study
  Country: BR (occurrence: BR)
  Receive Date: 20131016
  Receipt Date: 20131016
  Transmission Date: 20140711
  Serious: Yes (Other)
  Sender: FDA-Public Use
  Company Number: PHHY2013BR115143

PATIENT
  Sex: Male

DRUGS (1)
  1. TRILEPTAL [Suspect]
     Dosage: 1.5 DF, (1/2 TABLET IN THE MORNING AND 1 TABLET AT NIGHT)

REACTIONS (1)
  - Drug dependence [Unknown]
